FAERS Safety Report 5197638-3 (Version None)
Quarter: 2007Q1

REPORT INFORMATION
  Report Type: 
  Country: None (occurrence: None)
  Receive Date: 20070103
  Receipt Date: 20061227
  Transmission Date: 20070707
  Serious: Yes (Other)
  Sender: FDA-Public Use
  Company Number: BR-PFIZER INC-2006153652

PATIENT
  Sex: Female

DRUGS (4)
  1. LIPITOR [Suspect]
     Indication: HYPERCHOLESTEROLAEMIA
     Route: 048
     Dates: start: 20060501, end: 20061128
  2. AMLODIPINE [Concomitant]
     Route: 048
  3. CO-DIOVAN [Concomitant]
     Route: 048
  4. LERCANIDIPINE [Concomitant]
     Dates: start: 20060901

REACTIONS (5)
  - BLOOD CHOLESTEROL INCREASED [None]
  - MUSCLE SPASMS [None]
  - PARAESTHESIA [None]
  - SENSATION OF HEAVINESS [None]
  - TENDONITIS [None]
